FAERS Safety Report 6390967-7 (Version None)
Quarter: 2009Q4

REPORT INFORMATION
  Report Type: 
  Country: None (occurrence: None)
  Receive Date: 20091006
  Receipt Date: 20090929
  Transmission Date: 20100525
  Serious: Yes (Other)
  Sender: FDA-Public Use
  Company Number: US-JNJCH-2009026076

PATIENT
  Age: 38 Year
  Sex: Female
  Weight: 79.4 kg

DRUGS (1)
  1. ZYRTEC [Suspect]
     Indication: SNEEZING
     Route: 048

REACTIONS (1)
  - HYPOTHYROIDISM [None]
